FAERS Safety Report 9522346 (Version 1)
Quarter: 2013Q1

REPORT INFORMATION
  Report Type: Spontaneous
  Country: US (occurrence: None)
  Receive Date: 20130305
  Receipt Date: 20130305
  Transmission Date: 20140127
  Serious: Yes (Other)
  Sender: FDA-Public Use
  Company Number: 163-21880-12022689

PATIENT
  Age: 67 Year
  Sex: Male

DRUGS (5)
  1. REVLIMID [Suspect]
     Indication: PLASMA CELL MYELOMA
     Dosage: 25 MG, ONCE DAILY X 21 DAYS, PO
     Route: 048
     Dates: start: 201201, end: 2012
  2. ZOMETA (ZOLEDRONIC ACID) (UNKNOWN) [Concomitant]
  3. VELCADE (UNKNOWN) [Concomitant]
  4. DECADRON [Concomitant]
  5. MEGACE (MEGESTROL ACETATE ) (SUSPENSION) [Concomitant]

REACTIONS (5)
  - Aphagia [None]
  - Weight decreased [None]
  - Depression [None]
  - Asthenia [None]
  - Hypogeusia [None]
